FAERS Safety Report 11679260 (Version 3)
Quarter: 2015Q4

REPORT INFORMATION
  Report Type: Spontaneous
  Country: US (occurrence: US)
  Receive Date: 20151027
  Receipt Date: 20151110
  Transmission Date: 20160304
  Serious: No
  Sender: FDA-Public Use
  Company Number: US-ELI_LILLY_AND_COMPANY-US201010003442

PATIENT
  Age: 64 Year
  Sex: Female

DRUGS (5)
  1. FORTEO [Suspect]
     Active Substance: TERIPARATIDE
     Dosage: 20 UG, DAILY (1/D)
     Route: 058
  2. FORTEO [Suspect]
     Active Substance: TERIPARATIDE
     Dosage: 20 UG, QD
     Route: 058
  3. INTERFERON [Concomitant]
     Active Substance: INTERFERON
     Dates: start: 20091105, end: 20101001
  4. FORTEO [Suspect]
     Active Substance: TERIPARATIDE
     Indication: OSTEOPOROSIS
     Dosage: 20 UG, DAILY (1/D)
     Route: 058
     Dates: start: 20100924
  5. FORTEO [Suspect]
     Active Substance: TERIPARATIDE
     Dosage: 20 UG, QD
     Route: 058

REACTIONS (9)
  - Joint swelling [Unknown]
  - Drug dose omission [Recovered/Resolved]
  - Radius fracture [Unknown]
  - Mobility decreased [Unknown]
  - Injection site haemorrhage [Unknown]
  - Balance disorder [Unknown]
  - Fall [Unknown]
  - Wrist fracture [Unknown]
  - Injection site erythema [Unknown]

NARRATIVE: CASE EVENT DATE: 20101126
